FAERS Safety Report 8074180-3 (Version None)
Quarter: 2012Q1

REPORT INFORMATION
  Report Type: 
  Country: None (occurrence: None)
  Receive Date: 20120126
  Receipt Date: 20120123
  Transmission Date: 20120608
  Serious: Yes (Other)
  Sender: FDA-Public Use
  Company Number: US-PFIZER INC-2012018575

PATIENT
  Sex: Female
  Weight: 72.562 kg

DRUGS (5)
  1. ZANTAC [Suspect]
     Indication: DYSPEPSIA
  2. NORVASC [Suspect]
     Indication: BLOOD PRESSURE ABNORMAL
     Dosage: 10 MG, DAILY
  3. ZANTAC [Suspect]
     Indication: HYPERCHLORHYDRIA
     Dosage: 150 MG, DAILY
     Dates: start: 20111101
  4. LIPITOR [Suspect]
     Indication: BLOOD CHOLESTEROL ABNORMAL
     Dosage: 10 MG, DAILY
  5. ROBINUL FORTE [Suspect]
     Indication: HIATUS HERNIA
     Dosage: 2 MG, DAILY
     Dates: start: 20111101

REACTIONS (2)
  - HIATUS HERNIA [None]
  - NASOPHARYNGITIS [None]
